FAERS Safety Report 23460299 (Version 8)
Quarter: 2025Q1

REPORT INFORMATION
  Report Type: Spontaneous
  Country: KR (occurrence: KR)
  Receive Date: 20240131
  Receipt Date: 20250304
  Transmission Date: 20250408
  Serious: Yes (Hospitalization, Other)
  Sender: ACCORD
  Company Number: KR-Accord-403345

PATIENT
  Age: 60 Year
  Sex: Male

DRUGS (35)
  1. FLUOROURACIL [Suspect]
     Active Substance: FLUOROURACIL
     Indication: Adenocarcinoma gastric
     Route: 042
     Dates: start: 20230927, end: 20240110
  2. OXALIPLATIN [Suspect]
     Active Substance: OXALIPLATIN
     Indication: Adenocarcinoma gastric
     Route: 042
     Dates: start: 20230927, end: 20240110
  3. LEUCOVORIN CALCIUM [Suspect]
     Active Substance: LEUCOVORIN CALCIUM
     Indication: Adenocarcinoma gastric
     Route: 042
     Dates: start: 20230927, end: 20240110
  4. TISLELIZUMAB [Concomitant]
     Active Substance: TISLELIZUMAB
     Indication: Adenocarcinoma gastric
     Route: 042
     Dates: start: 20230927, end: 20240110
  5. PALONOSETRON HYDROCHLORIDE [Concomitant]
     Active Substance: PALONOSETRON HYDROCHLORIDE
     Dates: start: 20230927, end: 20240103
  6. DEXAMETHASONE [Concomitant]
     Active Substance: DEXAMETHASONE
     Dates: start: 20230927, end: 20240103
  7. FERROUS SULFATE [Concomitant]
     Active Substance: FERROUS SULFATE
     Dates: start: 20231004, end: 20240109
  8. URSODIOL [Concomitant]
     Active Substance: URSODIOL
     Dates: start: 20231122, end: 20231206
  9. ARGININE [Concomitant]
     Active Substance: ARGININE
     Dates: start: 20231127, end: 20240105
  10. ALBUMIN HUMAN [Concomitant]
     Active Substance: ALBUMIN HUMAN
     Dates: start: 20240109, end: 20240109
  11. ALMAGEL [Concomitant]
     Dates: start: 20231127, end: 20240109
  12. AUGMENTIN [Concomitant]
     Active Substance: AMOXICILLIN\CLAVULANATE POTASSIUM
     Dates: start: 20240105, end: 20240109
  13. ASCORBIC ACID W/CALC PANTOT/CYANOCO [Concomitant]
     Dates: start: 20231127, end: 20231206
  14. ASCORBIC ACID W/RETINOL/TOCOPHEROL [Concomitant]
     Dates: start: 20231206, end: 20240108
  15. CALCIUM GLUCONATE [Concomitant]
     Active Substance: CALCIUM GLUCONATE
     Dates: start: 20240109, end: 20240109
  16. CALCIUM POLYSTYRENE SULFONATE [Concomitant]
     Active Substance: CALCIUM POLYSTYRENE SULFONATE
     Dates: start: 20240108, end: 20240109
  17. CIPROFLOXACIN HYDROCHLORIDE [Concomitant]
     Active Substance: CIPROFLOXACIN HYDROCHLORIDE
     Dates: start: 20240109, end: 20240109
  18. NEXIUM [Concomitant]
     Active Substance: ESOMEPRAZOLE MAGNESIUM
     Dates: start: 20231127, end: 20240109
  19. GLUTATHIONE [Concomitant]
     Active Substance: GLUTATHIONE
     Dates: start: 20240109, end: 20240111
  20. GLUCONATE SODIUM, POTASSIUM CHLORIDE, SODIUM ACETATE, SODIUM CHLORIDE [Concomitant]
     Dates: start: 20240109, end: 20240109
  21. BUTYLSCOPOLAMINE BROMIDE [Concomitant]
     Active Substance: BUTYLSCOPOLAMINE BROMIDE
     Dates: start: 20240109, end: 20240111
  22. LEVOFLOXACIN [Concomitant]
     Active Substance: LEVOFLOXACIN
     Dates: start: 20240109, end: 20240109
  23. MAGNESIUM SULFATE [Concomitant]
     Active Substance: MAGNESIUM SULFATE
     Dates: start: 20240109, end: 20240109
  24. MEGACE [Concomitant]
     Active Substance: MEGESTROL ACETATE
     Dates: start: 20231127, end: 20240109
  25. METOCLOPRAMIDE HYDROCHLORIDE [Concomitant]
     Active Substance: METOCLOPRAMIDE HYDROCHLORIDE
     Dates: start: 20231124, end: 20240109
  26. NOREPINEPHRINE BITARTRATE [Concomitant]
     Active Substance: NOREPINEPHRINE BITARTRATE
     Dates: start: 20240109, end: 20240109
  27. ACETAMINOPHEN [Concomitant]
     Active Substance: ACETAMINOPHEN
     Dates: start: 20240105, end: 20240109
  28. PENTOXIFYLLINE [Concomitant]
     Active Substance: PENTOXIFYLLINE
     Dates: start: 20240109, end: 20240109
  29. PIPERACILLIN SODIUM\TAZOBACTAM SODIUM [Concomitant]
     Active Substance: PIPERACILLIN SODIUM\TAZOBACTAM SODIUM
     Dates: start: 20240109, end: 20240109
  30. REBAMIPIDE [Concomitant]
     Active Substance: REBAMIPIDE
     Dates: start: 20231127, end: 20240109
  31. TISLELIZUMAB [Concomitant]
     Active Substance: TISLELIZUMAB
     Indication: Adenocarcinoma gastric
     Route: 042
     Dates: start: 20240208
  32. OXALIPLATIN [Suspect]
     Active Substance: OXALIPLATIN
     Indication: Adenocarcinoma gastric
     Route: 042
     Dates: start: 20240125, end: 20240223
  33. LEUCOVORIN CALCIUM [Suspect]
     Active Substance: LEUCOVORIN CALCIUM
     Indication: Adenocarcinoma gastric
     Route: 042
     Dates: start: 20240125
  34. FLUOROURACIL [Suspect]
     Active Substance: FLUOROURACIL
     Indication: Adenocarcinoma gastric
     Route: 042
     Dates: start: 20240125
  35. FLUOROURACIL [Suspect]
     Active Substance: FLUOROURACIL
     Indication: Adenocarcinoma gastric
     Route: 042
     Dates: start: 20230927, end: 20240110

REACTIONS (1)
  - Enterocolitis [Recovered/Resolved]

NARRATIVE: CASE EVENT DATE: 20240110
